FAERS Safety Report 24687294 (Version 1)
Quarter: 2024Q4

REPORT INFORMATION
  Report Type: Spontaneous
  Country: US (occurrence: None)
  Receive Date: 20241201
  Receipt Date: 20241201
  Transmission Date: 20250114
  Serious: Yes (Hospitalization, Disabling, Other)
  Sender: Public
  Company Number: None

PATIENT
  Age: 23 Year
  Sex: Male

DRUGS (1)
  1. FINASTERIDE [Suspect]
     Active Substance: FINASTERIDE

REACTIONS (3)
  - Sexual dysfunction [None]
  - Cognitive disorder [None]
  - Physical disability [None]

NARRATIVE: CASE EVENT DATE: 20240902
